FAERS Safety Report 4709930-4 (Version None)
Quarter: 2005Q3

REPORT INFORMATION
  Report Type: 
  Country: None (occurrence: None)
  Receive Date: 20050708
  Receipt Date: 20041227
  Transmission Date: 20060218
  Serious: Yes (Other)
  Sender: FDA-Public Use
  Company Number: FR-ROCHE-390797

PATIENT
  Age: 56 Year
  Sex: Female

DRUGS (5)
  1. PEGASYS [Suspect]
     Indication: HEPATITIS C
     Dosage: INJECTABLE SOLUTION.
     Route: 058
     Dates: start: 20041015, end: 20041215
  2. ROCEPHIN [Suspect]
     Indication: DRUG USE FOR UNKNOWN INDICATION
     Dosage: INJECTABLE SOLUTION.
     Route: 065
  3. REBETOL [Suspect]
     Indication: HEPATITIS C
     Route: 048
     Dates: start: 20041015, end: 20041215
  4. GENTAMYCIN SULFATE [Suspect]
     Indication: DRUG USE FOR UNKNOWN INDICATION
     Route: 065
  5. GENTAMYCIN SULFATE [Suspect]
     Route: 065

REACTIONS (12)
  - ALOPECIA [None]
  - APHTHOUS STOMATITIS [None]
  - BLISTER [None]
  - DIARRHOEA [None]
  - DRY EYE [None]
  - ECZEMA [None]
  - EYELID OEDEMA [None]
  - GANGLION [None]
  - KERATITIS [None]
  - OTITIS EXTERNA [None]
  - SKIN FISSURES [None]
  - TOXIC EPIDERMAL NECROLYSIS [None]
